FAERS Safety Report 6084461-0 (Version None)
Quarter: 2009Q1

REPORT INFORMATION
  Report Type: 
  Country: None (occurrence: None)
  Receive Date: 20090219
  Receipt Date: 20090209
  Transmission Date: 20090719
  Serious: Yes (Hospitalization)
  Sender: FDA-Public Use
  Company Number: DE-PFIZER INC-2006087941

PATIENT

DRUGS (5)
  1. SUNITINIB MALATE [Suspect]
     Indication: METASTATIC RENAL CELL CARCINOMA
     Dosage: 50 MG, 1X/DAY
     Route: 048
     Dates: start: 20060313, end: 20060705
  2. PHENPROCOUMON [Concomitant]
     Dates: start: 20040901
  3. MORPHINE SULFATE [Concomitant]
     Dates: start: 20050801
  4. ESOMEPRAZOLE MAGNESIUM [Concomitant]
     Dates: start: 20060425
  5. HYDROTALCITE [Concomitant]
     Dates: start: 20060301

REACTIONS (2)
  - DERMATITIS ACNEIFORM [None]
  - DYSPNOEA [None]
